FAERS Safety Report 15156486 (Version 1)
Quarter: 2018Q3

REPORT INFORMATION
  Report Type: Report from Study
  Country: None (occurrence: US)
  Receive Date: 20180717
  Receipt Date: 20180717
  Transmission Date: 20181010
  Serious: Yes (Other)
  Sender: FDA-Public Use
  Company Number: US-ABBVIE-18S-163-2420359-00

PATIENT
  Age: 31 Year
  Sex: Female

DRUGS (1)
  1. LUPRON DEPOT [Suspect]
     Active Substance: LEUPROLIDE ACETATE
     Indication: PRODUCT USED FOR UNKNOWN INDICATION
     Route: 065

REACTIONS (6)
  - Surgery [Unknown]
  - Vaginal haemorrhage [Unknown]
  - Adhesion [Unknown]
  - Pelvic pain [Unknown]
  - Endometriosis [Unknown]
  - Pain [Unknown]

NARRATIVE: CASE EVENT DATE: 201712
